FAERS Safety Report 25714238 (Version 1)
Quarter: 2025Q3

REPORT INFORMATION
  Report Type: Spontaneous
  Country: US (occurrence: US)
  Receive Date: 20250822
  Receipt Date: 20250822
  Transmission Date: 20251021
  Serious: No
  Sender: GRIFOLS
  Company Number: US-IGSA-BIG0035491

PATIENT
  Age: 70 Year
  Sex: Female

DRUGS (8)
  1. XEMBIFY [Suspect]
     Active Substance: HUMAN IMMUNOGLOBULIN G
     Indication: Hypogammaglobulinaemia
     Dosage: 50 MILLILITER, Q.10D.
     Route: 058
  2. XEMBIFY [Suspect]
     Active Substance: HUMAN IMMUNOGLOBULIN G
     Dosage: 25 MILLILITER, Q.10D.
     Route: 058
  3. LEXAPRO [Concomitant]
     Active Substance: ESCITALOPRAM OXALATE
  4. SYNTHROID [Concomitant]
     Active Substance: LEVOTHYROXINE SODIUM
  5. VALIUM [Concomitant]
     Active Substance: DIAZEPAM
     Route: 067
  6. MORPHINE [Concomitant]
     Active Substance: MORPHINE
  7. LIDOCAINE [Concomitant]
     Active Substance: LIDOCAINE
     Route: 061
  8. PERCOCET [Concomitant]
     Active Substance: ACETAMINOPHEN\OXYCODONE HYDROCHLORIDE

REACTIONS (3)
  - Pain [Unknown]
  - Influenza like illness [Unknown]
  - Underdose [Unknown]
